FAERS Safety Report 8982722 (Version 1)
Quarter: 2012Q4

REPORT INFORMATION
  Report Type: 
  Country: DE (occurrence: DE)
  Receive Date: 20121221
  Receipt Date: 20121221
  Transmission Date: 20130627
  Serious: Yes (Hospitalization)
  Sender: FDA-Public Use
  Company Number: DE-VERTEX PHARMACEUTICALS INC.-2012-026551

PATIENT
  Age: 65 Year
  Sex: Female
  Weight: 59 kg

DRUGS (4)
  1. INCIVO [Suspect]
     Indication: HEPATITIS C
     Dosage: Dosage Form: Tablet
     Route: 048
     Dates: start: 20101015
  2. INCIVO [Suspect]
     Indication: CHRONIC HEPATITIS C
  3. RIBAVIRIN [Suspect]
     Indication: CHRONIC HEPATITIS C
     Dosage: Dosage Form: Tablet
     Route: 048
     Dates: start: 20111015
  4. PEGASYS [Suspect]
     Indication: CHRONIC HEPATITIS C
     Dosage: Dosage Form: Unspecified
     Route: 058
     Dates: start: 20111015

REACTIONS (1)
  - General physical health deterioration [Recovered/Resolved]
